FAERS Safety Report 25281722 (Version 3)
Quarter: 2025Q3

REPORT INFORMATION
  Report Type: Report from Study
  Country: US (occurrence: US)
  Receive Date: 20250508
  Receipt Date: 20250714
  Transmission Date: 20251021
  Serious: Yes (Other)
  Sender: ABBVIE
  Company Number: US-ABBVIE-6267226

PATIENT
  Age: 22 Year
  Sex: Female

DRUGS (2)
  1. RINVOQ [Suspect]
     Active Substance: UPADACITINIB
     Indication: Crohn^s disease
     Dosage: LAST ADMIN DATE: 2025
     Route: 048
     Dates: start: 20250305
  2. RINVOQ [Suspect]
     Active Substance: UPADACITINIB
     Indication: Crohn^s disease
     Route: 048
     Dates: start: 202506

REACTIONS (8)
  - Femur fracture [Recovering/Resolving]
  - Rib fracture [Recovering/Resolving]
  - Pneumothorax [Recovering/Resolving]
  - Amenorrhoea [Unknown]
  - Menstruation irregular [Unknown]
  - Heavy menstrual bleeding [Unknown]
  - Menstrual clots [Unknown]
  - Road traffic accident [Unknown]

NARRATIVE: CASE EVENT DATE: 20250101
